FAERS Safety Report 17072781 (Version 1)
Quarter: 2019Q4

REPORT INFORMATION
  Report Type: Report from Study
  Country: KE (occurrence: KE)
  Receive Date: 20191125
  Receipt Date: 20191125
  Transmission Date: 20200122
  Serious: Yes (Death)
  Sender: FDA-Public Use
  Company Number: KE-PFIZER INC-2019505367

PATIENT
  Age: 2 Year
  Sex: Female
  Weight: 13.9 kg

DRUGS (4)
  1. BLINDED AZITHROMYCIN [Suspect]
     Active Substance: AZITHROMYCIN ANHYDROUS
     Indication: PROPHYLAXIS
     Dosage: 4.0 ML, STAT
     Dates: start: 20190731, end: 20190731
  2. BLINDED PLACEBO [Suspect]
     Active Substance: INVESTIGATIONAL PRODUCT
     Indication: PROPHYLAXIS
     Dosage: 4.0 ML, STAT
     Dates: start: 20190731, end: 20190731
  3. BLINDED AZITHROMYCIN [Suspect]
     Active Substance: AZITHROMYCIN ANHYDROUS
     Indication: PROPHYLAXIS
     Dosage: 4.0 ML, STAT
     Dates: start: 20190731, end: 20190731
  4. BLINDED PLACEBO [Suspect]
     Active Substance: INVESTIGATIONAL PRODUCT
     Indication: PROPHYLAXIS
     Dosage: 4.0 ML, STAT
     Dates: start: 20190731, end: 20190731

REACTIONS (1)
  - Seizure [Fatal]

NARRATIVE: CASE EVENT DATE: 20190801
